FAERS Safety Report 6057635-2 (Version None)
Quarter: 2009Q1

REPORT INFORMATION
  Report Type: 
  Country: None (occurrence: None)
  Receive Date: 20090129
  Receipt Date: 20081125
  Transmission Date: 20090719
  Serious: No
  Sender: FDA-Public Use
  Company Number: US-BAUSCH-2008BL004968

PATIENT
  Age: 68 Year
  Sex: Female

DRUGS (3)
  1. BACITRACIN TOPICAL OINTMENT [Suspect]
     Indication: EYE INFECTION
     Route: 047
     Dates: start: 20081118, end: 20081122
  2. COCONUT OIL [Suspect]
  3. BENADRYL ^PARKE DAVIS^ /AUT/ [Concomitant]

REACTIONS (2)
  - DERMATITIS [None]
  - EYE SWELLING [None]
